FAERS Safety Report 8655595 (Version 2)
Quarter: 2014Q1

REPORT INFORMATION
  Report Type: Spontaneous
  Country: US (occurrence: US)
  Receive Date: 20120709
  Receipt Date: 20140228
  Transmission Date: 20141002
  Serious: No
  Sender: FDA-Public Use
  Company Number: US-AMGEN-USASP2012034542

PATIENT
  Age: 67 Year
  Sex: Male

DRUGS (1)
  1. ENBREL [Suspect]
     Indication: PSORIATIC ARTHROPATHY
     Dosage: 50 MG, QWK
     Route: 065
     Dates: start: 20080805

REACTIONS (5)
  - Dyspnoea [Unknown]
  - Pain [Recovered/Resolved]
  - Joint stiffness [Recovered/Resolved]
  - Feeling abnormal [Recovered/Resolved]
  - Gout [Not Recovered/Not Resolved]
